FAERS Safety Report 6673578-5 (Version None)
Quarter: 2010Q2

REPORT INFORMATION
  Report Type: 
  Country: None (occurrence: None)
  Receive Date: 20100408
  Receipt Date: 20100331
  Transmission Date: 20101027
  Serious: Yes (Other)
  Sender: FDA-Public Use
  Company Number: US-PFIZER INC-2010020795

PATIENT
  Sex: Female
  Weight: 63 kg

DRUGS (6)
  1. CELEBREX [Suspect]
     Indication: LIGAMENT SPRAIN
     Dosage: 200 MG, 1X/DAY
     Route: 048
     Dates: start: 20100201, end: 20100216
  2. CELEBREX [Suspect]
     Indication: RADICULOPATHY
  3. MELOXICAM [Suspect]
     Indication: LIGAMENT SPRAIN
     Dosage: 15 MG, 1X/DAY
     Route: 048
     Dates: start: 20100201, end: 20100201
  4. MELOXICAM [Suspect]
     Indication: RADICULOPATHY
  5. SOMA [Suspect]
     Indication: MUSCLE SPASMS
     Dosage: 350 MG, EVERY 4 HRS AS NEEDED
     Route: 048
     Dates: start: 20100210, end: 20100201
  6. ACETYLSALICYLIC ACID [Concomitant]

REACTIONS (6)
  - BACK INJURY [None]
  - DRUG INEFFECTIVE [None]
  - DYSSTASIA [None]
  - INSOMNIA [None]
  - MUSCLE SPASMS [None]
  - PAIN [None]
